FAERS Safety Report 9064348 (Version 1)
Quarter: 2013Q1

REPORT INFORMATION
  Report Type: Report from Study
  Country: GR (occurrence: GR)
  Receive Date: 20130213
  Receipt Date: 20130213
  Transmission Date: 20140127
  Serious: Yes (Hospitalization, Other)
  Sender: FDA-Public Use
  Company Number: PHHY2013GR008048

PATIENT
  Age: 33 Year
  Sex: Male
  Weight: 80 kg

DRUGS (6)
  1. FTY 720 [Suspect]
     Indication: MULTIPLE SCLEROSIS
     Dosage: 0.5 MG, QD
     Route: 048
  2. NEURONTIN [Concomitant]
     Indication: DYSAESTHESIA
     Dosage: 300 MG, UNK
  3. NEURONTIN [Concomitant]
     Indication: ATAXIA
  4. FILICINE [Concomitant]
     Indication: MULTIPLE SCLEROSIS
  5. IDEOS [Concomitant]
  6. METHYLPREDNISOLONE [Concomitant]
     Dosage: 1 G, UNK
     Route: 042
     Dates: start: 20130123, end: 20130127

REACTIONS (1)
  - Blindness [Not Recovered/Not Resolved]
